FAERS Safety Report 4545222-4 (Version None)
Quarter: 2004Q4

REPORT INFORMATION
  Report Type: 
  Country: None (occurrence: None)
  Receive Date: 20041222
  Receipt Date: 20040722
  Transmission Date: 20050328
  Serious: Yes (Hospitalization, Other)
  Sender: FDA-Public Use
  Company Number: USA040773348

PATIENT
  Age: 72 Year
  Sex: Female

DRUGS (4)
  1. HUMULIN N [Suspect]
  2. HUMULIN L [Suspect]
  3. HUMALOG [Suspect]
     Dates: start: 19990101
  4. LANTUS [Concomitant]

REACTIONS (4)
  - BLOOD GLUCOSE DECREASED [None]
  - BLOOD GLUCOSE INCREASED [None]
  - CEREBROVASCULAR ACCIDENT [None]
  - LOSS OF CONSCIOUSNESS [None]
